FAERS Safety Report 8764634 (Version 1)
Quarter: 2012Q4

REPORT INFORMATION
  Report Type: 
  Country: DK (occurrence: DK)
  Receive Date: 20120831
  Receipt Date: 20120831
  Transmission Date: 20130627
  Serious: Yes (Hospitalization)
  Sender: FDA-Public Use
  Company Number: DK-ALLERGAN-1211765US

PATIENT
  Age: 41 Year
  Sex: Female
  Weight: 59 kg

DRUGS (3)
  1. BOTOX [Suspect]
     Indication: CHRONIC MIGRAINE
     Dosage: 155 UNITS, single
     Route: 030
     Dates: start: 20120410, end: 20120410
  2. LISINOPRIL [Concomitant]
     Indication: MIGRAINE
     Dates: start: 201110
  3. RIBOFLAVIN [Concomitant]
     Indication: MIGRAINE
     Dates: start: 201111

REACTIONS (2)
  - Generalised oedema [Recovering/Resolving]
  - Fatigue [Recovering/Resolving]
